FAERS Safety Report 7825792-0 (Version None)
Quarter: 2011Q4

REPORT INFORMATION
  Report Type: 
  Country: None (occurrence: None)
  Receive Date: 20111019
  Receipt Date: 20100130
  Transmission Date: 20120403
  Serious: No
  Sender: FDA-Public Use
  Company Number: US-BAYER-201012874NA

PATIENT
  Age: 29 Year
  Sex: Male
  Weight: 72.562 kg

DRUGS (1)
  1. CIPROFLOXACIN [Suspect]
     Indication: COUGH
     Dosage: UNK
     Route: 048
     Dates: start: 20100101

REACTIONS (1)
  - CHEST PAIN [None]
